FAERS Safety Report 20523688 (Version 2)
Quarter: 2022Q1

REPORT INFORMATION
  Report Type: Spontaneous
  Country: JP (occurrence: JP)
  Receive Date: 20220228
  Receipt Date: 20220303
  Transmission Date: 20220423
  Serious: Yes (Hospitalization, Other)
  Sender: FDA-Public Use
  Company Number: JP-SA-2022SA054832

PATIENT
  Age: 74 Year
  Sex: Male

DRUGS (1)
  1. CLOPIDOGREL BISULFATE [Suspect]
     Active Substance: CLOPIDOGREL BISULFATE
     Indication: Myocardial infarction
     Dosage: UNK
     Route: 065

REACTIONS (9)
  - Hypercalcaemia [Recovered/Resolved]
  - Pulmonary mass [Recovered/Resolved]
  - Lymphadenopathy mediastinal [Recovered/Resolved]
  - Eosinophilia [Recovered/Resolved]
  - Erythema [Recovered/Resolved]
  - Blister [Recovered/Resolved]
  - Cough [Recovered/Resolved]
  - Eosinophilic pleural effusion [Recovered/Resolved]
  - Pulmonary eosinophilia [Recovered/Resolved]
